FAERS Safety Report 26095256 (Version 1)
Quarter: 2025Q4

REPORT INFORMATION
  Report Type: Spontaneous
  Country: EU (occurrence: EU)
  Receive Date: 20251127
  Receipt Date: 20251127
  Transmission Date: 20260118
  Serious: Yes (Other)
  Sender: MERCK SHARP & DOHME LLC
  Company Number: EU-JNJFOC-20251023744

PATIENT
  Age: 59 Year
  Sex: Male
  Weight: 137 kg

DRUGS (3)
  1. RALTEGRAVIR [Suspect]
     Active Substance: RALTEGRAVIR
     Indication: HIV infection
     Route: 065
  2. RITONAVIR [Suspect]
     Active Substance: RITONAVIR
     Indication: HIV infection
     Route: 065
  3. PREZISTA [Suspect]
     Active Substance: DARUNAVIR ETHANOLATE
     Indication: HIV infection
     Route: 048

REACTIONS (3)
  - Vascular stent stenosis [Unknown]
  - Dyslipidaemia [Unknown]
  - Coronary artery disease [Unknown]
